FAERS Safety Report 4409580-3 (Version None)
Quarter: 2004Q3

REPORT INFORMATION
  Report Type: 
  Country: None (occurrence: None)
  Receive Date: 20040723
  Receipt Date: 20040707
  Transmission Date: 20050211
  Serious: Yes (Life-Threatening, Hospitalization)
  Sender: FDA-Public Use
  Company Number: 2004-00183

PATIENT
  Age: 67 Year
  Sex: Male
  Weight: 72.6 kg

DRUGS (6)
  1. INTEGRILIN [Suspect]
     Indication: CORONARY ANGIOPLASTY
     Dosage: SEE IMAGE
     Route: 040
     Dates: start: 20040707, end: 20040707
  2. INTEGRILIN [Suspect]
     Indication: CORONARY ANGIOPLASTY
     Dosage: SEE IMAGE
     Route: 040
     Dates: start: 20040707, end: 20040707
  3. HEPARIN [Concomitant]
  4. LOVENOX [Concomitant]
  5. NITROGFLYCERIN (GLYCERYL TRINITRATE) [Concomitant]
  6. ASPIRIN [Concomitant]

REACTIONS (3)
  - DYSARTHRIA [None]
  - HYPOTENSION [None]
  - PROCEDURAL COMPLICATION [None]
